FAERS Safety Report 7607606-7 (Version None)
Quarter: 2011Q3

REPORT INFORMATION
  Report Type: 
  Country: None (occurrence: None)
  Receive Date: 20110713
  Receipt Date: 20110207
  Transmission Date: 20111222
  Serious: Yes (Other)
  Sender: FDA-Public Use
  Company Number: PHHY2011JP11522

PATIENT
  Sex: Male

DRUGS (6)
  1. PREDNISOLONE [Concomitant]
     Dosage: 5 MG,
     Route: 048
  2. TASIGNA [Suspect]
     Indication: CHRONIC MYELOID LEUKAEMIA
     Dosage: 800 MG, UNK
     Route: 048
     Dates: start: 20091116
  3. PREDNISOLONE [Concomitant]
     Dosage: 5 MG, UNK
     Route: 048
  4. PREDNISOLONE [Concomitant]
     Dosage: 100 MG, UNK
     Route: 048
     Dates: start: 20091214
  5. PREDNISOLONE [Concomitant]
     Dosage: 5 MG, UNK
     Route: 048
     Dates: end: 20100820
  6. ALLOPURINOL [Concomitant]
     Indication: HYPERURICAEMIA
     Dosage: 100 MG, UNK
     Route: 048
     Dates: start: 20091005

REACTIONS (2)
  - BLOOD GLUCOSE INCREASED [None]
  - BLOOD PHOSPHORUS DECREASED [None]
